FAERS Safety Report 5684630-5 (Version None)
Quarter: 2008Q1

REPORT INFORMATION
  Report Type: 
  Country: None (occurrence: None)
  Receive Date: 20080328
  Receipt Date: 20080318
  Transmission Date: 20080703
  Serious: Yes (Life-Threatening, Hospitalization)
  Sender: FDA-Public Use
  Company Number: CH-ROCHE-553861

PATIENT
  Age: 57 Year
  Sex: Female
  Weight: 121 kg

DRUGS (11)
  1. MIRCERA [Suspect]
     Indication: DRUG USE FOR UNKNOWN INDICATION
     Dosage: FORMULATION: VIAL
     Route: 042
     Dates: start: 20080201
  2. CARVEDILOL [Concomitant]
     Route: 048
  3. PHOSPHONORM [Concomitant]
     Route: 048
  4. MIMPARA [Concomitant]
     Route: 048
  5. NEXIUM [Concomitant]
     Dosage: DRUG NAME: NEXIUM MUPS
     Route: 048
  6. ROCALTROL [Concomitant]
     Route: 048
  7. SINTROM [Concomitant]
     Route: 048
  8. SORTIS [Concomitant]
     Route: 048
  9. TEMESTA [Concomitant]
     Route: 048
  10. XANAX [Concomitant]
     Route: 048
  11. INSULIN [Concomitant]
     Dosage: DRUG NAME: HUMINSULIN, DOSAGE REGIMEN: 18 IE/ DAILY
     Route: 058

REACTIONS (1)
  - ILL-DEFINED DISORDER [None]
